FAERS Safety Report 6895693-3 (Version None)
Quarter: 2010Q3

REPORT INFORMATION
  Report Type: 
  Country: None (occurrence: None)
  Receive Date: 20100728
  Receipt Date: 20100722
  Transmission Date: 20110219
  Serious: Yes (Hospitalization)
  Sender: FDA-Public Use
  Company Number: 103418

PATIENT
  Age: 41 Year
  Sex: Male

DRUGS (1)
  1. CISPLATIN [Suspect]
     Indication: URETERIC CANCER
     Dosage: 70MG/M2 ON DAY 2 EVERY 28 DAYS/IV
     Route: 042

REACTIONS (3)
  - ABDOMINAL PAIN [None]
  - ABDOMINAL TENDERNESS [None]
  - ENTEROCOLITIS [None]
